FAERS Safety Report 4385935-0 (Version None)
Quarter: 2004Q2

REPORT INFORMATION
  Report Type: 
  Country: None (occurrence: None)
  Receive Date: 20040628
  Receipt Date: 20040621
  Transmission Date: 20050107
  Serious: Yes (Other)
  Sender: FDA-Public Use
  Company Number: US-BRISTOL-MYERS SQUIBB COMPANY-12622460

PATIENT
  Age: 68 Year
  Sex: Female

DRUGS (2)
  1. GATIFLOXACIN [Suspect]
     Indication: URINARY TRACT INFECTION
     Route: 048
  2. GLYBURIDE [Concomitant]
     Indication: DIABETES MELLITUS

REACTIONS (2)
  - BLOOD GLUCOSE INCREASED [None]
  - HYPOGLYCAEMIA [None]
